FAERS Safety Report 16491148 (Version 2)
Quarter: 2019Q3

REPORT INFORMATION
  Report Type: Spontaneous
  Country: US (occurrence: US)
  Receive Date: 20190628
  Receipt Date: 20190805
  Transmission Date: 20191004
  Serious: No
  Sender: FDA-Public Use
  Company Number: US-GLAXOSMITHKLINE-US2019115007

PATIENT
  Age: 59 Year
  Sex: Female

DRUGS (1)
  1. LAMICTAL XR [Suspect]
     Active Substance: LAMOTRIGINE
     Indication: PRODUCT USED FOR UNKNOWN INDICATION
     Dosage: 1 DF, QD (300 MG AND 100 MG)
     Route: 048

REACTIONS (3)
  - Intercepted product dispensing error [Unknown]
  - Product dispensing error [Unknown]
  - Product complaint [Unknown]

NARRATIVE: CASE EVENT DATE: 20190327
